FAERS Safety Report 22302015 (Version 2)
Quarter: 2024Q4

REPORT INFORMATION
  Report Type: Report from Study
  Country: BR (occurrence: BR)
  Receive Date: 20230510
  Receipt Date: 20241106
  Transmission Date: 20250115
  Serious: Yes (Congenital Anomaly, Other)
  Sender: CELLTRION
  Company Number: BR-CELLTRION INC.-2023BR009594

PATIENT

DRUGS (1)
  1. INFLIXIMAB-DYYB [Suspect]
     Active Substance: INFLIXIMAB-DYYB
     Indication: Crohn^s disease
     Dosage: UNK
     Route: 065
     Dates: start: 20221215

REACTIONS (3)
  - Abortion [Unknown]
  - Intentional dose omission [Unknown]
  - Maternal exposure timing unspecified [Unknown]

NARRATIVE: CASE EVENT DATE: 20230417
